FAERS Safety Report 5623336-5 (Version None)
Quarter: 2008Q1

REPORT INFORMATION
  Report Type: 
  Country: None (occurrence: None)
  Receive Date: 20080212
  Receipt Date: 20080131
  Transmission Date: 20080703
  Serious: Yes (Hospitalization, Other)
  Sender: FDA-Public Use
  Company Number: FR-ROCHE-545096

PATIENT
  Age: 82 Year
  Sex: Female

DRUGS (2)
  1. ROCEPHIN [Suspect]
     Indication: DRUG USE FOR UNKNOWN INDICATION
     Dosage: DOSE: 2 GRAM AT ONCE. STRENGTH 2 G/40 ML. FORM INJECTABLE SOLUTION
     Route: 042
     Dates: start: 20071205
  2. VANCOMYCIN HCL [Suspect]
     Indication: INFECTION
     Dosage: DRUG: VANCOMYCINE MERCK. FORM INJECTABLE SOLUTION.
     Route: 042
     Dates: start: 20071203, end: 20071210

REACTIONS (5)
  - ERYTHEMA [None]
  - PRURITUS [None]
  - PYREXIA [None]
  - RASH [None]
  - SKIN EXFOLIATION [None]
